FAERS Safety Report 5186767-6 (Version None)
Quarter: 2006Q4

REPORT INFORMATION
  Report Type: 
  Country: None (occurrence: None)
  Receive Date: 20061220
  Receipt Date: 20060928
  Transmission Date: 20070319
  Serious: No
  Sender: FDA-Public Use
  Company Number: US-AMGEN-US195079

PATIENT
  Sex: Female

DRUGS (3)
  1. ENBREL [Suspect]
     Indication: RHEUMATOID ARTHRITIS
     Route: 058
     Dates: start: 20060628
  2. ARAVA [Concomitant]
     Route: 048
     Dates: start: 20050101
  3. METHOTREXATE [Concomitant]
     Route: 048
     Dates: start: 19970101

REACTIONS (7)
  - ASTHMA [None]
  - COUGH [None]
  - NASOPHARYNGITIS [None]
  - PULMONARY CONGESTION [None]
  - SEASONAL ALLERGY [None]
  - SNEEZING [None]
  - THERAPEUTIC RESPONSE DECREASED [None]
